FAERS Safety Report 18002130 (Version 1)
Quarter: 2020Q3

REPORT INFORMATION
  Report Type: Spontaneous
  Country: US (occurrence: US)
  Receive Date: 20200709
  Receipt Date: 20200709
  Transmission Date: 20201103
  Serious: No
  Sender: FDA-Public Use
  Company Number: US-TEVA-2020-US-1797778

PATIENT
  Sex: Female

DRUGS (1)
  1. PROPRANOLOL ER ACTAVIS [Suspect]
     Active Substance: PROPRANOLOL HYDROCHLORIDE
     Route: 065
     Dates: end: 2018

REACTIONS (1)
  - Drug hypersensitivity [Unknown]
